FAERS Safety Report 11217836 (Version 2)
Quarter: 2015Q3

REPORT INFORMATION
  Report Type: Report from Study
  Country: BR (occurrence: BR)
  Receive Date: 20150625
  Receipt Date: 20150708
  Transmission Date: 20151125
  Serious: Yes (Other)
  Sender: FDA-Public Use
  Company Number: PHHY2015BR071474

PATIENT
  Sex: Female
  Weight: 82 kg

DRUGS (6)
  1. DIOSMIN SDU [Concomitant]
     Active Substance: DIOSMIN
     Indication: POOR PERIPHERAL CIRCULATION
     Dosage: 1 DF, QD (STARTED USING 6 MONTHS AGO)
     Route: 048
  2. EUTHYROX [Concomitant]
     Active Substance: LEVOTHYROXINE SODIUM
     Indication: HYPOTHYROIDISM
     Dosage: 1 DF, QD (STARTED USING 10 YEARS AGO)
     Route: 048
  3. DIOVAN HCT [Suspect]
     Active Substance: HYDROCHLOROTHIAZIDE\VALSARTAN
     Indication: HYPERTENSION
     Dosage: 1 DF, QD
     Route: 048
  4. FLUOXETIN [Concomitant]
     Active Substance: FLUOXETINE HYDROCHLORIDE
     Indication: ANXIETY
     Dosage: 1 DF, QD (STARTED USING 6 MONTHS AGO)
     Route: 048
  5. LOSARTAN. [Concomitant]
     Active Substance: LOSARTAN
     Indication: HYPERTENSION
     Dosage: 1 DF, QD
     Route: 048
     Dates: start: 1992
  6. LOSARTAN. [Concomitant]
     Active Substance: LOSARTAN
     Dosage: 2 DF, QD (1 IN THE MORNING AND 1 AT NIGHT)
     Route: 048

REACTIONS (1)
  - Speech disorder [Recovering/Resolving]
